FAERS Safety Report 4860558-5 (Version None)
Quarter: 2005Q4

REPORT INFORMATION
  Report Type: 
  Country: None (occurrence: None)
  Receive Date: 20051219
  Receipt Date: 20050908
  Transmission Date: 20060501
  Serious: Yes (Hospitalization, Disabling, Other)
  Sender: FDA-Public Use
  Company Number: US-MERCK-0509USA01057

PATIENT
  Age: 43 Year
  Sex: Male
  Weight: 70 kg

DRUGS (12)
  1. VIOXX [Suspect]
     Indication: ARTHRITIS
     Route: 048
     Dates: start: 20000305, end: 20030627
  2. CELEBREX [Suspect]
     Route: 065
  3. RANITIDINE HYDROCHLORIDE [Concomitant]
     Route: 065
  4. RENAGEL [Concomitant]
     Route: 065
  5. PROPOXYPHENE HYDROCHLORIDE [Concomitant]
     Route: 065
  6. AMITRIL [Concomitant]
     Route: 065
     Dates: start: 20010206, end: 20020727
  7. [THERAPY UNSPECIFIED] [Concomitant]
     Route: 065
     Dates: start: 20030206, end: 20030911
  8. [THERAPY UNSPECIFIED] [Concomitant]
     Route: 065
     Dates: start: 20000203, end: 20010203
  9. ATIVAN [Concomitant]
     Route: 065
     Dates: start: 20000203, end: 20010203
  10. SERAX [Concomitant]
     Route: 065
     Dates: start: 20000203, end: 20010203
  11. CENTRAX [Concomitant]
     Route: 065
     Dates: start: 20000203, end: 20010203
  12. LITHIUM-ASPARTAT [Concomitant]
     Route: 065
     Dates: start: 20000203, end: 20010203

REACTIONS (42)
  - ABDOMINAL PAIN UPPER [None]
  - ACUTE PULMONARY OEDEMA [None]
  - BRONCHITIS ACUTE [None]
  - CANDIDIASIS [None]
  - CARDIAC DISORDER [None]
  - CARDIAC FAILURE CONGESTIVE [None]
  - CARDIOMEGALY [None]
  - CATARACT [None]
  - CEREBROVASCULAR ACCIDENT [None]
  - CHEST PAIN [None]
  - CHRONIC OBSTRUCTIVE PULMONARY DISEASE [None]
  - COLITIS [None]
  - DIVERTICULUM [None]
  - DYSPNOEA [None]
  - EMPHYSEMA [None]
  - EYE DISORDER [None]
  - FLUID OVERLOAD [None]
  - GASTRITIS [None]
  - GASTROINTESTINAL DISORDER [None]
  - HAEMORRHOIDS [None]
  - HYPERKALAEMIA [None]
  - LUNG CONSOLIDATION [None]
  - LUPUS NEPHRITIS [None]
  - MUSCULOSKELETAL CHEST PAIN [None]
  - MYOCARDIAL INFARCTION [None]
  - NEPHROLITHIASIS [None]
  - OCCULT BLOOD POSITIVE [None]
  - OESOPHAGEAL CANDIDIASIS [None]
  - ORCHITIS [None]
  - PAIN [None]
  - PAIN IN EXTREMITY [None]
  - PINGUECULA [None]
  - PNEUMONIA [None]
  - PRESCRIBED OVERDOSE [None]
  - PYREXIA [None]
  - RENAL FAILURE [None]
  - RENAL FAILURE CHRONIC [None]
  - RETINOPATHY HYPERTENSIVE [None]
  - SEPSIS [None]
  - STAPHYLOCOCCAL INFECTION [None]
  - SYSTEMIC LUPUS ERYTHEMATOSUS [None]
  - UVEITIS [None]
